FAERS Safety Report 5098445-2 (Version None)
Quarter: 2006Q3

REPORT INFORMATION
  Report Type: 
  Country: None (occurrence: None)
  Receive Date: 20060906
  Receipt Date: 20060118
  Transmission Date: 20061208
  Serious: No
  Sender: FDA-Public Use
  Company Number: US-GLAXOSMITHKLINE-A0589879A

PATIENT
  Age: 75 Year
  Sex: Female

DRUGS (8)
  1. REQUIP [Suspect]
     Indication: PARKINSON'S DISEASE
     Dosage: .25MG THREE TIMES PER DAY
     Route: 048
     Dates: start: 20060107
  2. LEVOXYL [Concomitant]
  3. TOPROL-XL [Concomitant]
  4. ATACAND [Concomitant]
  5. CRESTOR [Concomitant]
  6. SPIRONOLACTONE [Concomitant]
  7. CLONAZEPAM [Concomitant]
  8. ASPIRIN [Concomitant]

REACTIONS (1)
  - ABDOMINAL PAIN [None]
